FAERS Safety Report 8117688-4 (Version None)
Quarter: 2012Q1

REPORT INFORMATION
  Report Type: 
  Country: None (occurrence: None)
  Receive Date: 20120201
  Receipt Date: 20111108
  Transmission Date: 20120608
  Serious: Yes (Other)
  Sender: FDA-Public Use
  Company Number: PIN-2011-00048

PATIENT

DRUGS (1)
  1. PHOTOFRIN [Suspect]
     Indication: BILE DUCT CANCER
     Dosage: 2 MG/KG BODYWEIGHT, 042

REACTIONS (2)
  - HAEMOBILIA [None]
  - OFF LABEL USE [None]
